FAERS Safety Report 20514727 (Version 2)
Quarter: 2022Q2

REPORT INFORMATION
  Report Type: Report from Study
  Country: US (occurrence: None)
  Receive Date: 20220224
  Receipt Date: 20220428
  Transmission Date: 20220721
  Serious: Yes (Hospitalization)
  Sender: FDA-Public Use
  Company Number: US-Eisai Medical Research-EC-2022-109155

PATIENT
  Age: 53 Year
  Sex: Female
  Weight: 61.69 kg

DRUGS (7)
  1. LENVIMA [Suspect]
     Active Substance: LENVATINIB
     Indication: Endometrial cancer
     Route: 048
     Dates: start: 20220211, end: 20220213
  2. LENVIMA [Suspect]
     Active Substance: LENVATINIB
     Dosage: MISSED 2 DOSES
     Route: 048
     Dates: start: 20220325
  3. TYLENOL [Concomitant]
     Active Substance: ACETAMINOPHEN
  4. TUMS [Concomitant]
     Active Substance: CALCIUM CARBONATE
  5. CALCIUM-VITAMINS-B6-B12-FA [Concomitant]
     Route: 048
  6. KEYTRUDA [Concomitant]
     Active Substance: PEMBROLIZUMAB
  7. HERCEPTIN [Concomitant]
     Active Substance: TRASTUZUMAB

REACTIONS (3)
  - Seizure [Recovered/Resolved]
  - Electrolyte imbalance [Recovered/Resolved]
  - Nausea [Recovered/Resolved]

NARRATIVE: CASE EVENT DATE: 20220213
